FAERS Safety Report 17161653 (Version 1)
Quarter: 2019Q4

REPORT INFORMATION
  Report Type: Spontaneous
  Country: FR (occurrence: FR)
  Receive Date: 20191217
  Receipt Date: 20191217
  Transmission Date: 20200122
  Serious: Yes (Hospitalization)
  Sender: FDA-Public Use
  Company Number: FR-AUROBINDO-AUR-APL-2019-104919

PATIENT
  Age: 79 Year
  Sex: Male
  Weight: 60.5 kg

DRUGS (1)
  1. VALACICLOVIR [Suspect]
     Active Substance: VALACYCLOVIR HYDROCHLORIDE
     Indication: HERPES ZOSTER
     Dosage: 3 GRAM, ONCE A DAY
     Route: 048
     Dates: start: 20191107, end: 20191112

REACTIONS (4)
  - Confusional state [Recovered/Resolved]
  - Gait disturbance [Recovered/Resolved]
  - Agitation [Recovered/Resolved]
  - Disturbance in attention [Recovered/Resolved]

NARRATIVE: CASE EVENT DATE: 20191108
